FAERS Safety Report 20908083 (Version 1)
Quarter: 2022Q2

REPORT INFORMATION
  Report Type: Spontaneous
  Country: None (occurrence: FR)
  Receive Date: 20220602
  Receipt Date: 20220602
  Transmission Date: 20220721
  Serious: Yes (Other)
  Sender: FDA-Public Use
  Company Number: FR-B.Braun Medical Inc.-2129438

PATIENT
  Age: 62 Year
  Sex: Female

DRUGS (8)
  1. ACETAMINOPHEN [Suspect]
     Active Substance: ACETAMINOPHEN
  2. MODERNA COVID-19 VACCINE [Suspect]
     Active Substance: ELASOMERAN
  3. LATANOPROST [Concomitant]
     Active Substance: LATANOPROST
  4. LEVOTHYROX (AMIDON DE MAIS, CROSCARMELLOSE SODIQUE, GELATINE ((MAMMIFE [Concomitant]
  5. LACTOSE MONOHYDRATE [Concomitant]
     Active Substance: LACTOSE MONOHYDRATE
  6. LEVOTHYROXINE SODIQUE, [Concomitant]
  7. MAGNESIUM [Concomitant]
     Active Substance: MAGNESIUM
  8. STEARATE DE MAGNESIUM [Concomitant]

REACTIONS (2)
  - Hepatocellular injury [Recovered/Resolved]
  - Lymphopenia [Recovered/Resolved]
